FAERS Safety Report 5294935-8 (Version None)
Quarter: 2007Q2

REPORT INFORMATION
  Report Type: 
  Country: None (occurrence: None)
  Receive Date: 20070412
  Receipt Date: 20070329
  Transmission Date: 20071010
  Serious: Yes (Death, Hospitalization)
  Sender: FDA-Public Use
  Company Number: US-ROCHE-476815

PATIENT
  Age: 65 Year
  Sex: Male
  Weight: 72.1 kg

DRUGS (9)
  1. XELODA [Suspect]
     Indication: COLON CANCER
     Dosage: CYCLE 1. HE TOOK 3500/D.
     Route: 048
     Dates: start: 20061116
  2. XELODA [Suspect]
     Dosage: CYCLE 2. HE TOOK 3500/D.
     Route: 048
     Dates: start: 20061207, end: 20061221
  3. AVASTIN [Suspect]
     Indication: COLON CANCER
     Dosage: CYCLE 1
     Route: 042
     Dates: start: 20061116
  4. AVASTIN [Suspect]
     Dosage: CYCLE 2
     Route: 042
     Dates: start: 20061207, end: 20061207
  5. OXALIPLATIN [Suspect]
     Indication: COLON CANCER
     Dosage: CYCLE 1
     Route: 042
     Dates: start: 20061116
  6. OXALIPLATIN [Suspect]
     Dosage: CYCLE 2
     Route: 042
     Dates: start: 20061207, end: 20061207
  7. ZOCOR [Suspect]
     Indication: DRUG USE FOR UNKNOWN INDICATION
     Dosage: THE PATIENT HAD BEEN TAKING ZOCOR FOR 4 YEARS.
     Route: 065
     Dates: start: 20030115
  8. LEVOFLOXACIN [Concomitant]
     Dates: start: 20061226
  9. FLAGYL [Concomitant]
     Dates: start: 20061226

REACTIONS (12)
  - ASTHENIA [None]
  - CARDIAC ARREST [None]
  - DIARRHOEA [None]
  - HEPATITIS [None]
  - INTESTINAL ISCHAEMIA [None]
  - LARGE INTESTINE PERFORATION [None]
  - MUCOSAL INFLAMMATION [None]
  - RHABDOMYOLYSIS [None]
  - SEPSIS [None]
  - SHOCK [None]
  - STOMATITIS [None]
  - TRANSAMINASES INCREASED [None]
